FAERS Safety Report 23317784 (Version 1)
Quarter: 2023Q4

REPORT INFORMATION
  Report Type: Spontaneous
  Country: US (occurrence: None)
  Receive Date: 20231219
  Receipt Date: 20231219
  Transmission Date: 20240110
  Serious: No
  Sender: FDA-Public Use
  Company Number: US-ROCHE-3406501

PATIENT
  Sex: Male

DRUGS (1)
  1. GAZYVA [Suspect]
     Active Substance: OBINUTUZUMAB
     Indication: Product used for unknown indication
     Dosage: UNKNOWN?100 MG DOSE OF GAZYVA ON 14 AUGUST.
     Route: 065

REACTIONS (4)
  - Platelet count decreased [Unknown]
  - Chills [Recovered/Resolved]
  - Hypotension [Recovered/Resolved]
  - Intercepted medication error [Unknown]
